FAERS Safety Report 21403714 (Version 2)
Quarter: 2022Q4

REPORT INFORMATION
  Report Type: Spontaneous
  Country: GB (occurrence: GB)
  Receive Date: 20221003
  Receipt Date: 20221003
  Transmission Date: 20230113
  Serious: Yes (Other)
  Sender: FDA-Public Use
  Company Number: GB-PFIZER INC-PV202200073549

PATIENT
  Sex: Male

DRUGS (1)
  1. LORLATINIB [Suspect]
     Active Substance: LORLATINIB
     Dosage: UNK
     Dates: start: 20220824

REACTIONS (3)
  - Psychotic disorder [Unknown]
  - Paranoia [Unknown]
  - Aggression [Unknown]

NARRATIVE: CASE EVENT DATE: 20220101
